FAERS Safety Report 9704226 (Version 1)
Quarter: 2013Q4

REPORT INFORMATION
  Report Type: Spontaneous
  Country: FR (occurrence: FR)
  Receive Date: 20131122
  Receipt Date: 20131122
  Transmission Date: 20140711
  Serious: Yes (Hospitalization, Other)
  Sender: FDA-Public Use
  Company Number: FR-PFIZER INC-2013327580

PATIENT
  Age: 57 Year
  Sex: Female

DRUGS (19)
  1. DALACINE [Suspect]
     Indication: ENDOCARDITIS STAPHYLOCOCCAL
     Dosage: 2 DF, 3X/DAY
     Route: 048
     Dates: start: 201308
  2. DALACINE [Suspect]
     Dosage: 600 MG, 4X/DAY
     Route: 048
     Dates: start: 20130907
  3. DALACINE [Suspect]
     Dosage: 600 MG, 3X/DAY
     Route: 048
     Dates: start: 20130913
  4. DALACINE [Suspect]
     Dosage: 300 MG, 3X/DAY
     Route: 048
     Dates: start: 20131017
  5. DALACINE [Suspect]
     Dosage: 150 MG, 3X/DAY
     Route: 048
     Dates: start: 20131029
  6. RIFADINE [Suspect]
     Indication: ENDOCARDITIS STAPHYLOCOCCAL
     Dosage: 600 MG, 2X/DAY
     Route: 048
     Dates: start: 201308, end: 201308
  7. BRISTOPEN [Concomitant]
     Indication: ENDOCARDITIS STAPHYLOCOCCAL
     Dosage: 4.5 G, DAILY
     Route: 042
     Dates: start: 201308
  8. BRISTOPEN [Concomitant]
     Dosage: 2.5 G, 2X/DAY
     Route: 042
     Dates: start: 20130907
  9. BRISTOPEN [Concomitant]
     Dosage: 1.5 G, 3X/DAY
     Route: 042
     Dates: start: 20130913
  10. BRISTOPEN [Concomitant]
     Dosage: 2.5 G, 2X/DAY
     Route: 042
     Dates: start: 20131017
  11. KAYEXALATE [Concomitant]
     Indication: HYPERKALAEMIA
     Dosage: 3 DF, DAILY
     Route: 048
  12. OROCAL VITAMIN D [Concomitant]
     Indication: HYPOCALCAEMIA
     Dosage: 2 DF, 2X/DAY
     Route: 048
  13. CORDARONE [Concomitant]
     Indication: ARRHYTHMIA
     Dosage: 400 MG, DAILY
     Route: 048
  14. FOSRENOL [Concomitant]
     Indication: BLOOD PHOSPHORUS INCREASED
     Dosage: 3000 MG, DAILY
     Route: 048
  15. VENOFER [Concomitant]
     Dosage: 1 DF, EVERY 2 WEEKS
     Route: 042
     Dates: end: 20130925
  16. ZYMAD [Concomitant]
     Dosage: 1 DF, MONTHLY
  17. MIMPARA [Concomitant]
     Indication: HYPERPARATHYROIDISM
     Dosage: 30 MG, DAILY
     Route: 048
  18. ARANESP [Concomitant]
     Dosage: 50 UG, WEEKLY
     Route: 058
     Dates: end: 20130923
  19. PREVISCAN [Concomitant]
     Dosage: 0.25 DF, DAILY
     Route: 048
     Dates: end: 20130925

REACTIONS (4)
  - Hepatic failure [Recovered/Resolved]
  - Bilirubin conjugated increased [Recovered/Resolved]
  - Gamma-glutamyltransferase increased [Recovered/Resolved]
  - Blood alkaline phosphatase increased [Recovered/Resolved]
